FAERS Safety Report 4807518-8 (Version None)
Quarter: 2005Q4

REPORT INFORMATION
  Report Type: 
  Country: None (occurrence: None)
  Receive Date: 20051024
  Receipt Date: 20051012
  Transmission Date: 20060501
  Serious: Yes (Other)
  Sender: FDA-Public Use
  Company Number: DE-JNJFOC-20050605292

PATIENT
  Age: 5 Year
  Sex: Male
  Weight: 15 kg

DRUGS (2)
  1. TOPAMAX [Suspect]
     Route: 048
  2. TOPAMAX [Suspect]
     Route: 048

REACTIONS (5)
  - ANHIDROSIS [None]
  - DEMYELINATION [None]
  - ILL-DEFINED DISORDER [None]
  - METABOLIC DISORDER [None]
  - TUBEROUS SCLEROSIS [None]
